FAERS Safety Report 9506039 (Version 1)
Quarter: 2013Q1

REPORT INFORMATION
  Report Type: Spontaneous
  Country: US (occurrence: None)
  Receive Date: 20130206
  Receipt Date: 20130206
  Transmission Date: 20140127
  Serious: Yes (Other)
  Sender: FDA-Public Use
  Company Number: DAV-AE-MTX-12-18

PATIENT
  Age: 62 Year
  Sex: Female

DRUGS (3)
  1. METHOTREXATE [Suspect]
     Indication: PSORIASIS
     Dates: start: 1990, end: 2000
  2. LISINOPRIL [Concomitant]
  3. ENBREL [Concomitant]

REACTIONS (1)
  - Liver disorder [None]
